FAERS Safety Report 19035806 (Version 1)
Quarter: 2021Q1

REPORT INFORMATION
  Report Type: Spontaneous
  Country: DE (occurrence: DE)
  Receive Date: 20210321
  Receipt Date: 20210321
  Transmission Date: 20210420
  Serious: Yes (Hospitalization, Other)
  Sender: FDA-Public Use
  Company Number: DE-TEVA-2021-DE-1891688

PATIENT
  Age: 14 Year
  Sex: Male
  Weight: 44 kg

DRUGS (14)
  1. CELLCEPT [Suspect]
     Active Substance: MYCOPHENOLATE MOFETIL\MYCOPHENOLATE MOFETIL HYDROCHLORIDE
     Indication: RENAL TRANSPLANT
     Dosage: DAILY DOSE: 1000 MG MILLGRAM(S) EVERY DAYS 2 SEPARATED DOSES, 1000MG
     Route: 048
     Dates: start: 201011
  2. ATENOLOL. [Concomitant]
     Active Substance: ATENOLOL
     Indication: RENAL HYPERTENSION
     Dosage: DAILY DOSE: 100 MG MILLGRAM(S) EVERY DAYS 2 SEPARATED DOSES, 100MG
     Route: 048
     Dates: end: 20200529
  3. ALLOPURINOL. [Concomitant]
     Active Substance: ALLOPURINOL
     Indication: HYPERURICAEMIA
     Dosage: DAILY DOSE: 300 MG MILLGRAM(S) EVERY DAYS 3 SEPARATED DOSES, 300MG
     Route: 048
     Dates: start: 202001
  4. MAGNESIUM VERLA N [Concomitant]
     Active Substance: MAGNESIUM
     Indication: BLOOD MAGNESIUM ABNORMAL
     Dosage: DAILY DOSE: 9.9 MMOL MILLIMOLE(S) EVERY DAYS 3 SEPARATED DOSES, 9.9MMOL
     Route: 048
     Dates: start: 20180205
  5. FUROSEMID [Concomitant]
     Active Substance: FUROSEMIDE
     Indication: HYPERTENSION
     Dosage: DAILY DOSE: 180 MG MILLGRAM(S) EVERY DAYS 3 SEPARATED DOSES, 180MG
     Route: 048
     Dates: start: 202001
  6. FERRUM HAUSMANN 50MG/ML [Concomitant]
     Indication: IRON DEFICIENCY
     Dosage: 40 GTT DAILY;
     Route: 048
     Dates: start: 201907
  7. MODIGRAF 1MG [Suspect]
     Active Substance: TACROLIMUS
     Indication: RENAL TRANSPLANT
     Dosage: DAILY DOSE: 3.2 MG MILLGRAM(S) EVERY DAYS 2 SEPARATED DOSES, 3.2MG
     Route: 048
     Dates: start: 201703, end: 20200602
  8. PREDNISOLON [Suspect]
     Active Substance: PREDNISOLONE
     Indication: RENAL TRANSPLANT
     Dosage: 2.5 MILLIGRAM DAILY;
     Route: 048
     Dates: start: 20200417
  9. AMLODIPIN 5MG [Concomitant]
     Active Substance: AMLODIPINE BESYLATE
     Indication: RENAL HYPERTENSION
     Dosage: DAILY DOSE: 15 MG MILLGRAM(S) EVERY DAYS 2 SEPARATED DOSES, 15MG
     Route: 048
     Dates: start: 20170901
  10. BICANORM [Concomitant]
     Active Substance: SODIUM BICARBONATE
     Indication: RENAL TUBULAR ACIDOSIS
     Dosage: DAILY DOSE: 6 G GRAM(S) EVERY DAYS 3 SEPARATED DOSES, 6GM
     Route: 048
     Dates: start: 201009
  11. METAMIZOL?NATRIUM [Concomitant]
     Indication: PYREXIA
     Dates: start: 20200529, end: 20200529
  12. VIGANTOL OL 20000IE/ML [Concomitant]
     Indication: VITAMIN D DEFICIENCY
     Dosage: DAILY DOSE: 3000 IU INTERNATIONAL UNIT(S) EVERY DAYS 3 SEPARATED DOSES, 3000IU
     Route: 048
     Dates: start: 201006
  13. ERYTHROPOIETIN [Concomitant]
     Active Substance: ERYTHROPOIETIN
     Indication: NEPHROGENIC ANAEMIA
     Dosage: 8000IU
     Dates: start: 202003
  14. EINSALPHA 2UG/ML TROPFEN [Concomitant]
     Indication: CHRONIC KIDNEY DISEASE-MINERAL AND BONE DISORDER
     Dosage: 15 GTT DAILY;
     Route: 048
     Dates: start: 20100630

REACTIONS (5)
  - Chills [Recovered/Resolved]
  - Staphylococcal sepsis [Recovered/Resolved]
  - Pyrexia [Recovered/Resolved]
  - Headache [Recovered/Resolved]
  - Device related sepsis [Recovered/Resolved]

NARRATIVE: CASE EVENT DATE: 20200529
